FAERS Safety Report 17728665 (Version 1)
Quarter: 2020Q2

REPORT INFORMATION
  Report Type: Spontaneous
  Country: US (occurrence: US)
  Receive Date: 20200429
  Receipt Date: 20200429
  Transmission Date: 20200714
  Serious: Yes (Death)
  Sender: FDA-Public Use
  Company Number: None

PATIENT
  Age: 75 Year
  Sex: Female
  Weight: 55.79 kg

DRUGS (1)
  1. AMIODARONE HCL 200MG [Suspect]
     Active Substance: AMIODARONE HYDROCHLORIDE
     Indication: ATRIAL FIBRILLATION
     Dosage: ?          QUANTITY:200 MG MILLIGRAM(S);?
     Route: 048

REACTIONS (7)
  - Arthralgia [None]
  - Skin discolouration [None]
  - Pain in extremity [None]
  - Oedema peripheral [None]
  - Peripheral swelling [None]
  - Neck pain [None]
  - Nocturia [None]
